FAERS Safety Report 23236826 (Version 1)
Quarter: 2023Q4

REPORT INFORMATION
  Report Type: Spontaneous
  Country: RU (occurrence: RU)
  Receive Date: 20231128
  Receipt Date: 20231128
  Transmission Date: 20240109
  Serious: Yes (Hospitalization)
  Sender: FDA-Public Use
  Company Number: RU-SANDOZ-SDZ2023RU019965

PATIENT
  Sex: Female

DRUGS (3)
  1. ASPIRIN [Suspect]
     Active Substance: ASPIRIN
     Indication: Suicide attempt
     Dosage: UNK, PER OS
     Route: 048
  2. CITRAMON P [Suspect]
     Active Substance: ACETAMINOPHEN\ASPIRIN\CAFFEINE
     Indication: Suicide attempt
     Dosage: UNK, PER OS
     Route: 048
  3. ETHAMSYLATE [Suspect]
     Active Substance: ETHAMSYLATE
     Indication: Suicide attempt
     Dosage: UNK, PER OS
     Route: 048
     Dates: start: 20230826, end: 20230826

REACTIONS (2)
  - Dizziness [Recovering/Resolving]
  - Hypoaesthesia [Recovering/Resolving]

NARRATIVE: CASE EVENT DATE: 20230826
